FAERS Safety Report 5410333-8 (Version None)
Quarter: 2007Q3

REPORT INFORMATION
  Report Type: 
  Country: None (occurrence: None)
  Receive Date: 20070808
  Receipt Date: 20070726
  Transmission Date: 20080115
  Serious: Yes (Death)
  Sender: FDA-Public Use
  Company Number: 2007-03603

PATIENT
  Age: 16 Year
  Sex: Female

DRUGS (2)
  1. HYDROXYCHLOROQUINE SULFATE [Suspect]
     Indication: JUVENILE ARTHRITIS
     Dosage: 200 MG, BID, ORAL
     Route: 048
  2. INDOMETHACIN [Concomitant]

REACTIONS (3)
  - ACUTE HEPATIC FAILURE [None]
  - LIVER TRANSPLANT [None]
  - MULTI-ORGAN FAILURE [None]
